FAERS Safety Report 8163922-4 (Version None)
Quarter: 2012Q1

REPORT INFORMATION
  Report Type: 
  Country: None (occurrence: None)
  Receive Date: 20120224
  Receipt Date: 20120214
  Transmission Date: 20120608
  Serious: Yes (Other)
  Sender: FDA-Public Use
  Company Number: PHEH2012US001454

PATIENT
  Age: 89 Year
  Sex: Female

DRUGS (4)
  1. DIOVAN [Suspect]
     Dosage: UNK
  2. CELEBREX [Concomitant]
     Indication: ARTHRITIS
     Dosage: 200 MG, UNK
  3. DIOVAN HCT [Suspect]
     Dosage: 1 DF (160/12.5MG), QD IN THE MORNING
  4. LANSOPRAZOLE [Concomitant]
     Indication: ACID BASE BALANCE ABNORMAL
     Dosage: 30 MG, UNK

REACTIONS (4)
  - ABASIA [None]
  - HERPES ZOSTER [None]
  - HYPOACUSIS [None]
  - MYALGIA [None]
